FAERS Safety Report 4720990-7 (Version None)
Quarter: 2005Q3

REPORT INFORMATION
  Report Type: 
  Country: None (occurrence: None)
  Receive Date: 20050720
  Receipt Date: 20050707
  Transmission Date: 20060218
  Serious: Yes (Hospitalization)
  Sender: FDA-Public Use
  Company Number: 2005092460

PATIENT
  Age: 41 Year
  Sex: Female
  Weight: 41 kg

DRUGS (3)
  1. SOMATROPIN (SOMATROPIN) [Suspect]
     Indication: OVULATION INDUCTION
     Dates: start: 19990101
  2. HMG (MENOTROPHIN) [Concomitant]
  3. HCG (CHORIONIC GONADOTROPHIN) [Concomitant]

REACTIONS (7)
  - BLOOD PROLACTIN INCREASED [None]
  - BREAST CANCER FEMALE [None]
  - BREAST HYPERPLASIA [None]
  - BREAST MASS [None]
  - FIBROADENOMA [None]
  - MALIGNANT NEOPLASM PROGRESSION [None]
  - OESTROGEN RECEPTOR ASSAY POSITIVE [None]
